FAERS Safety Report 8290651 (Version 4)
Quarter: 2013Q1

REPORT INFORMATION
  Report Type: Spontaneous
  Country: RU (occurrence: RU)
  Receive Date: 20111214
  Receipt Date: 20130318
  Transmission Date: 20140127
  Serious: Yes (Death)
  Sender: FDA-Public Use
  Company Number: RU-JNJFOC-20111204994

PATIENT
  Age: 1 Month
  Sex: 0

DRUGS (6)
  1. DOXORUBICIN HYDROCHLORIDE [Suspect]
     Indication: NEUROBLASTOMA
     Route: 042
  2. DOXORUBICIN HYDROCHLORIDE [Suspect]
     Indication: NEUROBLASTOMA
     Route: 065
  3. CYCLOPHOSPHAMIDE [Suspect]
     Indication: NEUROBLASTOMA
     Route: 065
  4. ETOPOSIDE [Suspect]
     Indication: NEUROBLASTOMA
     Route: 065
  5. CARBOPLATIN [Suspect]
     Indication: NEUROBLASTOMA
     Route: 065
  6. RADIOTHERAPY [Concomitant]
     Indication: NEUROBLASTOMA
     Route: 065

REACTIONS (1)
  - Toxicity to various agents [Fatal]
